FAERS Safety Report 6288692-6 (Version None)
Quarter: 2009Q3

REPORT INFORMATION
  Report Type: 
  Country: None (occurrence: None)
  Receive Date: 20090729
  Receipt Date: 20090724
  Transmission Date: 20100115
  Serious: Yes (Hospitalization)
  Sender: FDA-Public Use
  Company Number: US-GENENTECH-286735

PATIENT
  Sex: Female
  Weight: 38.8 kg

DRUGS (2)
  1. BEVACIZUMAB [Suspect]
     Indication: OESOPHAGEAL CARCINOMA
     Dosage: 580 MG, Q3W
     Route: 042
     Dates: start: 20090617, end: 20090709
  2. RAPAMYCIN [Suspect]
     Indication: OESOPHAGEAL CARCINOMA
     Dosage: 4 MG, QD
     Route: 048
     Dates: start: 20090617, end: 20090706

REACTIONS (1)
  - CONFUSIONAL STATE [None]
